FAERS Safety Report 6655574-7 (Version None)
Quarter: 2010Q1

REPORT INFORMATION
  Report Type: 
  Country: None (occurrence: None)
  Receive Date: 20100329
  Receipt Date: 20100128
  Transmission Date: 20100710
  Serious: No
  Sender: FDA-Public Use
  Company Number: US-TYCO HEALTHCARE/MALLINCKRODT-T201000575

PATIENT
  Age: 73 Year
  Sex: Female

DRUGS (3)
  1. TECHNETIUM TC 99M SESTAMIBI [Suspect]
     Indication: CARDIAC STRESS TEST
     Dosage: UNK, SINGLE
     Dates: start: 20100128, end: 20100128
  2. ULTRA-TECHNEKOW [Concomitant]
     Indication: CARDIAC STRESS TEST
     Dosage: 32 MCI, SINGLE
     Dates: start: 20100128, end: 20100128
  3. LEXISCAN [Suspect]
     Indication: CARDIAC STRESS TEST
     Dosage: UNK
     Dates: start: 20100128, end: 20100128

REACTIONS (1)
  - DRUG INEFFECTIVE [None]
